FAERS Safety Report 10228367 (Version 1)
Quarter: 2014Q2

REPORT INFORMATION
  Report Type: Spontaneous
  Country: US (occurrence: None)
  Receive Date: 20140609
  Receipt Date: 20140609
  Transmission Date: 20141212
  Serious: Yes (Disabling)
  Sender: FDA-Public Use
  Company Number: None

PATIENT
  Age: 46 Year
  Sex: Female
  Weight: 115.67 kg

DRUGS (1)
  1. HUMIRA [Suspect]
     Indication: PROSTATIC SPECIFIC ANTIGEN
     Dosage: BIWEEKLY, INTO THE MUSCLE
     Route: 030
     Dates: start: 20140603

REACTIONS (1)
  - Urinary tract infection [None]
